FAERS Safety Report 6847796-7 (Version None)
Quarter: 2010Q3

REPORT INFORMATION
  Report Type: 
  Country: None (occurrence: None)
  Receive Date: 20100714
  Receipt Date: 20100629
  Transmission Date: 20110219
  Serious: Yes (Other)
  Sender: FDA-Public Use
  Company Number: 2010AP001126

PATIENT
  Age: 49 Year
  Sex: Female

DRUGS (5)
  1. VALPROIC ACID SYRUP [Suspect]
     Indication: DRUG DEPENDENCE
     Dosage: 750 M G;QD
  2. BENZODIAZEPINE DERIATIVES [Concomitant]
  3. ETHANOL [Concomitant]
  4. LORAZEPAM [Concomitant]
  5. CITALOPRAM HYDROBROMIDE [Concomitant]

REACTIONS (7)
  - AGITATION [None]
  - CONFUSIONAL STATE [None]
  - DELUSION [None]
  - DISORIENTATION [None]
  - GAIT DISTURBANCE [None]
  - HALLUCINATIONS, MIXED [None]
  - HYPERAMMONAEMIC ENCEPHALOPATHY [None]
